FAERS Safety Report 21980845 (Version 3)
Quarter: 2023Q1

REPORT INFORMATION
  Report Type: Spontaneous
  Country: CA (occurrence: CA)
  Receive Date: 20230211
  Receipt Date: 20230318
  Transmission Date: 20230418
  Serious: Yes (Other)
  Sender: FDA-Public Use
  Company Number: CA-CELLTRION INC.-2023CA002934

PATIENT

DRUGS (5)
  1. INFLECTRA [Suspect]
     Active Substance: INFLIXIMAB-DYYB
     Indication: Colitis ulcerative
     Dosage: W0,W2,W6 AND EVERY 8 WEEKS
     Route: 042
     Dates: start: 20220704
  2. INFLECTRA [Suspect]
     Active Substance: INFLIXIMAB-DYYB
     Dosage: W0,W2,W6 AND EVERY 8 WEEKS
     Route: 042
     Dates: start: 20230201
  3. INFLECTRA [Suspect]
     Active Substance: INFLIXIMAB-DYYB
     Dosage: 5 MG/KG WEEKS 0, 2, 6 THEN Q 8 WEEKS
     Route: 042
     Dates: start: 20230208
  4. MESALAMINE [Concomitant]
     Active Substance: MESALAMINE
     Dosage: 4 G, 1X/DAY
  5. PREDNISONE [Concomitant]
     Active Substance: PREDNISONE
     Dosage: 40 MG,X 14 DAY COURSE
     Dates: start: 20220612

REACTIONS (9)
  - Anaphylactic reaction [Recovering/Resolving]
  - Hypertension [Unknown]
  - Oxygen saturation decreased [Recovering/Resolving]
  - Hypotension [Not Recovered/Not Resolved]
  - Heart rate increased [Recovering/Resolving]
  - Respiratory rate increased [Recovering/Resolving]
  - Chest pain [Unknown]
  - Flushing [Unknown]
  - Off label use [Unknown]

NARRATIVE: CASE EVENT DATE: 20230201
